FAERS Safety Report 18197928 (Version 1)
Quarter: 2020Q3

REPORT INFORMATION
  Report Type: Spontaneous
  Country: NL (occurrence: NL)
  Receive Date: 20200826
  Receipt Date: 20200826
  Transmission Date: 20201103
  Serious: Yes (Other)
  Sender: FDA-Public Use
  Company Number: NL-PFIZER INC-2020325750

PATIENT
  Sex: Female

DRUGS (1)
  1. IBRANCE [Suspect]
     Active Substance: PALBOCICLIB
     Dosage: UNK (FOR 3 MONTHS)

REACTIONS (7)
  - Hypoglycaemia [Unknown]
  - Pruritus [Unknown]
  - Hypertension [Unknown]
  - Dizziness [Unknown]
  - Diabetes mellitus [Unknown]
  - Acne [Unknown]
  - Vasodilatation [Recovered/Resolved]
